FAERS Safety Report 14730491 (Version 2)
Quarter: 2018Q2

REPORT INFORMATION
  Report Type: Spontaneous
  Country: JP (occurrence: JP)
  Receive Date: 20180406
  Receipt Date: 20180406
  Transmission Date: 20180711
  Serious: Yes (Other)
  Sender: FDA-Public Use
  Company Number: PHJP2018JP007722

PATIENT
  Age: 90 Year
  Sex: Male
  Weight: 47.7 kg

DRUGS (14)
  1. EXELON [Suspect]
     Active Substance: RIVASTIGMINE TARTRATE
     Dosage: 4.5 MG, QD (PATCH 2.5 (CM2))
     Route: 062
     Dates: start: 20170727, end: 20170820
  2. MAGMITT [Concomitant]
     Active Substance: MAGNESIUM OXIDE
     Indication: CONSTIPATION
     Dosage: 500 MG, TID
     Route: 048
     Dates: start: 20150801
  3. NORVASC [Concomitant]
     Active Substance: AMLODIPINE BESYLATE
     Indication: HYPERTENSION
     Dosage: 5 MG, QD
     Route: 048
     Dates: start: 20160301
  4. DONEPEZIL HYDROCHLORIDE ODT [Suspect]
     Active Substance: DONEPEZIL HYDROCHLORIDE
     Indication: DEMENTIA
     Dosage: 5 MG, QD
     Route: 048
     Dates: start: 20150801, end: 20161201
  5. GRAMALIL [Concomitant]
     Active Substance: TIAPRIDE HYDROCHLORIDE
     Indication: CEREBRAL INFARCTION
     Dosage: 25 MG, QD
     Route: 048
     Dates: start: 20151222
  6. EXELON [Suspect]
     Active Substance: RIVASTIGMINE TARTRATE
     Dosage: 9 MG, QD (PATCH 5 (CM2))
     Route: 062
     Dates: start: 20170821
  7. SEROQUEL [Concomitant]
     Active Substance: QUETIAPINE FUMARATE
     Indication: DEMENTIA ALZHEIMER^S TYPE
     Dosage: 25 MG, TID
     Route: 048
     Dates: start: 20161207
  8. EXELON [Suspect]
     Active Substance: RIVASTIGMINE TARTRATE
     Dosage: 13.5 MG, QD (PATCH 7.5 (CM2))
     Route: 062
     Dates: start: 20161207, end: 20170105
  9. EXELON [Suspect]
     Active Substance: RIVASTIGMINE TARTRATE
     Dosage: 18 MG, QD (PATCH 10 (CM2))
     Route: 062
     Dates: start: 20170106, end: 20170718
  10. EDIROL [Concomitant]
     Active Substance: ELDECALCITOL
     Indication: OSTEOPOROSIS
     Dosage: 0.75 MG, UNK
     Route: 048
     Dates: start: 20150801, end: 20170419
  11. YOKUKANSAN [Concomitant]
     Active Substance: HERBALS
     Indication: DEMENTIA ALZHEIMER^S TYPE
     Dosage: 2.5 MG, BID
     Route: 048
     Dates: start: 20160615
  12. ALFAROL [Concomitant]
     Active Substance: ALFACALCIDOL
     Indication: OSTEOPOROSIS
     Dosage: 0.75 UG, QD
     Route: 048
     Dates: start: 20170421
  13. EXELON [Suspect]
     Active Substance: RIVASTIGMINE TARTRATE
     Indication: DEMENTIA ALZHEIMER^S TYPE
     Dosage: 4.5 MG, QD (PATCH 2.5 (CM2))
     Route: 062
     Dates: start: 20161026
  14. EXELON [Suspect]
     Active Substance: RIVASTIGMINE TARTRATE
     Dosage: 9 MG, QD (PATCH 5 (CM2))
     Route: 062
     Dates: start: 20161115

REACTIONS (1)
  - Blood cholinesterase decreased [Recovering/Resolving]

NARRATIVE: CASE EVENT DATE: 20170606
